FAERS Safety Report 5241489-8 (Version None)
Quarter: 2007Q1

REPORT INFORMATION
  Report Type: 
  Country: None (occurrence: None)
  Receive Date: 20070220
  Receipt Date: 20070212
  Transmission Date: 20070707
  Serious: Yes (Death)
  Sender: FDA-Public Use
  Company Number: IE-GLAXOSMITHKLINE-B0319394A

PATIENT
  Age: 39 Year
  Sex: Male

DRUGS (1)
  1. SEROXAT [Suspect]
     Indication: DEPRESSION
     Dosage: 20MG PER DAY
     Route: 048
     Dates: start: 20031201

REACTIONS (10)
  - AGITATION [None]
  - AKATHISIA [None]
  - ANAESTHESIA [None]
  - COMPLETED SUICIDE [None]
  - DEPRESSION [None]
  - FEELING OF DESPAIR [None]
  - GENERAL PHYSICAL HEALTH DETERIORATION [None]
  - IMPULSIVE BEHAVIOUR [None]
  - PERSONALITY CHANGE [None]
  - SOCIAL AVOIDANT BEHAVIOUR [None]
